FAERS Safety Report 8500022-5 (Version None)
Quarter: 2012Q2

REPORT INFORMATION
  Report Type: 
  Country: None (occurrence: None)
  Receive Date: 20120629
  Receipt Date: 20120619
  Transmission Date: 20120825
  Serious: Yes (Death)
  Sender: FDA-Public Use
  Company Number: 2012TP000209

PATIENT
  Age: 61 Year
  Sex: Female

DRUGS (1)
  1. LIDODERM [Suspect]
     Dosage: TOP
     Route: 061

REACTIONS (1)
  - DEATH [None]
